FAERS Safety Report 18763211 (Version 1)
Quarter: 2021Q1

REPORT INFORMATION
  Report Type: Spontaneous
  Country: US (occurrence: US)
  Receive Date: 20210120
  Receipt Date: 20210120
  Transmission Date: 20210419
  Serious: Yes (Death, Hospitalization)
  Sender: FDA-Public Use
  Company Number: None

PATIENT
  Age: 83 Year
  Sex: Male
  Weight: 68 kg

DRUGS (1)
  1. BAMLANIVIMAB. [Suspect]
     Active Substance: BAMLANIVIMAB
     Indication: COVID-19
     Dosage: ?          OTHER FREQUENCY:ONCE;?
     Route: 042
     Dates: start: 20201202, end: 20201202

REACTIONS (13)
  - Acute kidney injury [None]
  - Dizziness [None]
  - Pneumonia [None]
  - Respiratory failure [None]
  - Lung infiltration [None]
  - Atelectasis [None]
  - Asthenia [None]
  - Cough [None]
  - Oxygen saturation decreased [None]
  - Mental status changes [None]
  - Fall [None]
  - Rhabdomyolysis [None]
  - Dyspnoea [None]

NARRATIVE: CASE EVENT DATE: 20201214
